FAERS Safety Report 8592661-0 (Version None)
Quarter: 2012Q3

REPORT INFORMATION
  Report Type: 
  Country: None (occurrence: None)
  Receive Date: 20120814
  Receipt Date: 20120802
  Transmission Date: 20120928
  Serious: Yes (Other)
  Sender: FDA-Public Use
  Company Number: CN-ASTRAZENECA-2012SE56645

PATIENT
  Age: 853 Month
  Sex: Male
  Weight: 68 kg

DRUGS (1)
  1. FELODIPINE [Suspect]
     Indication: HYPERTENSION
     Route: 048
     Dates: start: 20100915, end: 20100917

REACTIONS (1)
  - ANAPHYLACTOID REACTION [None]
